FAERS Safety Report 20853690 (Version 1)
Quarter: 2022Q2

REPORT INFORMATION
  Report Type: Spontaneous
  Country: US (occurrence: None)
  Receive Date: 20220518
  Receipt Date: 20220518
  Transmission Date: 20220721
  Serious: Yes (Disabling)
  Sender: FDA-Public Use
  Company Number: None

PATIENT
  Age: 32 Year
  Sex: Female
  Weight: 51.3 kg

DRUGS (14)
  1. CIPROFLOXACIN HYDROCHLORIDE [Suspect]
     Active Substance: CIPROFLOXACIN HYDROCHLORIDE
     Indication: Urinary tract infection
     Dosage: FREQUENCY : TWICE A DAY;?
     Route: 048
     Dates: start: 20211011, end: 20211015
  2. COENZYME Q10 [Concomitant]
     Active Substance: DIETARY SUPPLEMENT\UBIDECARENONE
  3. OMEGA 3 [Concomitant]
     Active Substance: CAPSAICIN
  4. DIETARY SUPPLEMENT [Concomitant]
     Active Substance: DIETARY SUPPLEMENT
  5. MAGNESIUM [Concomitant]
     Active Substance: MAGNESIUM
  6. VITAMIN C [Concomitant]
     Active Substance: ASCORBIC ACID
  7. COLLAGEN [Concomitant]
     Active Substance: COLLAGEN
  8. RIBOFLAVIN [Concomitant]
     Active Substance: RIBOFLAVIN
  9. VITAMIN B12 [Concomitant]
     Active Substance: CYANOCOBALAMIN
  10. PROLINE [Concomitant]
     Active Substance: PROLINE
  11. GLYCINE [Concomitant]
     Active Substance: GLYCINE
  12. LYSINE [Concomitant]
     Active Substance: LYSINE
  13. Acetyl-Carnetine [Concomitant]
  14. ALPHA LIPOIC ACID [Concomitant]

REACTIONS (14)
  - Tendon pain [None]
  - Neck pain [None]
  - Arthralgia [None]
  - Arthralgia [None]
  - Toxicity to various agents [None]
  - Gait disturbance [None]
  - Feeling abnormal [None]
  - Panic attack [None]
  - Anxiety [None]
  - Neuropathy peripheral [None]
  - Back pain [None]
  - Insomnia [None]
  - Suicidal ideation [None]
  - Loss of personal independence in daily activities [None]

NARRATIVE: CASE EVENT DATE: 20211016
